FAERS Safety Report 8861546 (Version 1)
Quarter: 2012Q4

REPORT INFORMATION
  Report Type: 
  Country: US (occurrence: US)
  Receive Date: 20121025
  Receipt Date: 20121025
  Transmission Date: 20130627
  Serious: No
  Sender: FDA-Public Use
  Company Number: US-AMGEN-USASP2012016270

PATIENT
  Age: 82 Year
  Sex: Male

DRUGS (12)
  1. ENBREL [Suspect]
     Indication: PRODUCT USED FOR UNKNOWN INDICATION
     Dosage: 50 mg, qwk
     Route: 058
  2. ASA [Concomitant]
     Dosage: 81 mg, UNK
  3. SULFASALAZIN [Concomitant]
     Dosage: 500 mg, UNK
  4. PREVACARE [Concomitant]
  5. UROXATRAL [Concomitant]
     Dosage: 10 mg, UNK
  6. DIOVAN HCT [Concomitant]
  7. OMEPRAZOLE [Concomitant]
     Dosage: 10 mg, UNK
  8. AMLODIPINE [Concomitant]
     Dosage: 2.5 mg, UNK
  9. ZEMPLAR [Concomitant]
     Dosage: 4 mug, UNK
  10. FINASTERIDE [Concomitant]
     Dosage: 5 mg, UNK
  11. FISH OIL [Concomitant]
  12. COQ10                              /00517201/ [Concomitant]
     Dosage: 100 mg, UNK

REACTIONS (2)
  - Arthralgia [Unknown]
  - Musculoskeletal stiffness [Unknown]
